FAERS Safety Report 21751083 (Version 1)
Quarter: 2022Q4

REPORT INFORMATION
  Report Type: Spontaneous
  Country: US (occurrence: US)
  Receive Date: 20221220
  Receipt Date: 20221220
  Transmission Date: 20230112
  Serious: Yes (Other)
  Sender: FDA-Public Use
  Company Number: US-MALLINCKRODT-T202206444

PATIENT
  Sex: Female

DRUGS (2)
  1. H.P. ACTHAR [Suspect]
     Active Substance: CORTICOTROPIN
     Indication: Multiple sclerosis
     Dosage: 80 UNITS (1 ML) ONCE DAILY, DAY 1 TO 10
     Route: 058
  2. H.P. ACTHAR [Suspect]
     Active Substance: CORTICOTROPIN
     Dosage: 20 UNITS (0.25 ML) DAILY, DAY 11 TO 14
     Route: 058

REACTIONS (1)
  - Multiple sclerosis relapse [Not Recovered/Not Resolved]
